FAERS Safety Report 9468310 (Version 3)
Quarter: 2013Q4

REPORT INFORMATION
  Report Type: Spontaneous
  Country: US (occurrence: US)
  Receive Date: 20130821
  Receipt Date: 20131204
  Transmission Date: 20140711
  Serious: Yes (Death, Hospitalization)
  Sender: FDA-Public Use
  Company Number: US-B.I. PHARMACEUTICALS,INC./RIDGEFIELD-2013-BI-25801BP

PATIENT
  Age: 73 Year
  Sex: Female
  Weight: 120.66 kg

DRUGS (6)
  1. PRADAXA [Suspect]
     Indication: ATRIAL FIBRILLATION
     Dosage: 300 MG
     Route: 048
     Dates: start: 201105, end: 201107
  2. PRADAXA [Suspect]
     Indication: DEEP VEIN THROMBOSIS
     Dosage: 150 MG
     Route: 048
     Dates: start: 201107, end: 201108
  3. DIGOXIN [Concomitant]
     Indication: CARDIAC DISORDER
  4. LISINOPRIL [Concomitant]
     Indication: CARDIAC DISORDER
  5. ALDACTONE [Concomitant]
     Indication: CARDIAC DISORDER
  6. HEPARIN [Concomitant]

REACTIONS (5)
  - Intestinal ischaemia [Fatal]
  - Haemorrhagic stroke [Unknown]
  - Ischaemic stroke [Unknown]
  - Transient ischaemic attack [Recovered/Resolved]
  - Haemorrhage [Unknown]
